FAERS Safety Report 21053518 (Version 1)
Quarter: 2022Q3

REPORT INFORMATION
  Report Type: Spontaneous
  Country: AU (occurrence: AU)
  Receive Date: 20220707
  Receipt Date: 20220707
  Transmission Date: 20221027
  Serious: Yes (Hospitalization)
  Sender: FDA-Public Use
  Company Number: AU-SA-2022SA258848

PATIENT
  Sex: Male

DRUGS (7)
  1. CLOPIDOGREL BISULFATE [Suspect]
     Active Substance: CLOPIDOGREL BISULFATE
     Indication: Carotid artery aneurysm
     Dosage: 75 MG, QD
  2. CLOPIDOGREL BISULFATE [Suspect]
     Active Substance: CLOPIDOGREL BISULFATE
     Indication: Carotid artery stent insertion
  3. PRASUGREL [Suspect]
     Active Substance: PRASUGREL
     Indication: Carotid artery aneurysm
  4. PRASUGREL [Suspect]
     Active Substance: PRASUGREL
     Indication: Carotid artery stent insertion
  5. ASPIRIN [Concomitant]
     Active Substance: ASPIRIN
     Indication: Carotid artery aneurysm
     Dosage: 100 MG
  6. ASPIRIN [Concomitant]
     Active Substance: ASPIRIN
     Indication: Carotid artery stent insertion
  7. TIROFIBAN [Concomitant]
     Active Substance: TIROFIBAN
     Indication: Carotid artery occlusion

REACTIONS (1)
  - Drug resistance [Unknown]
